FAERS Safety Report 21724908 (Version 1)
Quarter: 2022Q4

REPORT INFORMATION
  Report Type: Other
  Country: GB (occurrence: GB)
  Receive Date: 20221214
  Receipt Date: 20221214
  Transmission Date: 20230113
  Serious: Yes (Death)
  Sender: FDA-Public Use
  Company Number: None

PATIENT
  Age: 79 Year
  Sex: Male

DRUGS (3)
  1. COLCHICINE [Suspect]
     Active Substance: COLCHICINE
     Indication: Gout
     Dosage: 500 MCG, (BD), BID, TABLET
     Route: 065
     Dates: start: 20221115, end: 20221122
  2. NAPROXEN [Suspect]
     Active Substance: NAPROXEN
     Indication: Gout
     Dosage: 500 MILLIGRAM, BID (BD), TABLET
     Route: 065
     Dates: start: 20221115, end: 20221123
  3. DARBEPOETIN ALFA [Concomitant]
     Active Substance: DARBEPOETIN ALFA
     Indication: Myelodysplastic syndrome
     Dosage: UNK
     Route: 065
     Dates: start: 20211111

REACTIONS (2)
  - Circulatory collapse [Fatal]
  - Upper gastrointestinal haemorrhage [Fatal]

NARRATIVE: CASE EVENT DATE: 20221122
